FAERS Safety Report 9440908 (Version 1)
Quarter: 2013Q3

REPORT INFORMATION
  Report Type: Spontaneous
  Country: US (occurrence: None)
  Receive Date: 20130801
  Receipt Date: 20130801
  Transmission Date: 20140515
  Serious: Yes (Other)
  Sender: FDA-Public Use
  Company Number: JPI-P-033933

PATIENT
  Age: 33 Year
  Sex: Female

DRUGS (2)
  1. LUVOX CR (CAPSULES) (FLUVOXAMINE MALEATE) [Suspect]
     Indication: PRODUCT USED FOR UNKNOWN INDICATION
     Dosage: 100 MG, CONTROLLED RELEASE FORM
     Route: 048
     Dates: start: 2009
  2. LUVOX [Suspect]
     Indication: PRODUCT USED FOR UNKNOWN INDICATION
     Dosage: 25 MG, IMMEDIATE RELEASE FORM), ORAL
     Route: 048
     Dates: start: 2009

REACTIONS (2)
  - Obsessive-compulsive disorder [None]
  - Colectomy total [None]
